FAERS Safety Report 8478063 (Version 5)
Quarter: 2014Q1

REPORT INFORMATION
  Report Type: Report from Study
  Country: GB (occurrence: GB)
  Receive Date: 20120327
  Receipt Date: 20140328
  Transmission Date: 20141002
  Serious: Yes (Death, Hospitalization)
  Sender: FDA-Public Use
  Company Number: GB-PFIZER INC-2012075639

PATIENT
  Age: 67 Year
  Sex: Male
  Weight: 85 kg

DRUGS (8)
  1. CISPLATIN [Suspect]
     Indication: GASTRIC CANCER
     Dosage: UNK
     Route: 042
     Dates: start: 20110922
  2. CISPLATIN [Suspect]
     Dosage: 120 MG, UNK
     Route: 042
     Dates: end: 20111117
  3. EPIRUBICIN HCL [Suspect]
     Indication: GASTRIC CANCER
     Dosage: UNK
     Route: 042
     Dates: start: 20110922
  4. EPIRUBICIN HCL [Suspect]
     Dosage: 50 MG, UNK
     Route: 042
     Dates: end: 20111117
  5. BEVACIZUMAB [Suspect]
     Indication: GASTRIC CANCER
     Dosage: UNK
     Route: 042
     Dates: start: 20110922
  6. BEVACIZUMAB [Suspect]
     Dosage: 655 MG, UNK
     Route: 042
     Dates: end: 20111117
  7. CAPECITABINE [Suspect]
     Indication: GASTRIC CANCER
     Dosage: UNK
     Route: 048
     Dates: start: 20110922
  8. CAPECITABINE [Suspect]
     Dosage: 5250 MG, UNK
     Route: 048
     Dates: end: 20111208

REACTIONS (2)
  - Post procedural haemorrhage [Fatal]
  - Gastrointestinal anastomotic leak [Recovered/Resolved with Sequelae]
